FAERS Safety Report 8572800 (Version 5)
Quarter: 2012Q4

REPORT INFORMATION
  Report Type: Report from Study
  Country: US (occurrence: US)
  Receive Date: 20120522
  Receipt Date: 20120905
  Transmission Date: 20130627
  Serious: Yes (Hospitalization, Other)
  Sender: FDA-Public Use
  Company Number: US-CELGENEUS-163-21880-12041180

PATIENT
  Age: 62 Year
  Sex: Male
  Weight: 60.7 kg

DRUGS (27)
  1. PROZAC [Concomitant]
     Indication: DEPRESSION
     Dosage: 20 Milligram
     Route: 048
     Dates: start: 20110624
  2. VALACYCLOVIR [Concomitant]
     Indication: ANTIVIRAL PROPHYLAXIS
     Dosage: 500 Milligram
     Route: 048
     Dates: start: 20110914
  3. DILTIAZEM [Concomitant]
     Indication: HYPERTENSION
     Dosage: 360 Milligram
     Route: 048
  4. LACTULOSE [Concomitant]
     Indication: CONSTIPATION
     Dosage: 30 milliliter
     Route: 048
  5. MELATONIN [Concomitant]
     Indication: INSOMNIA
     Dosage: 20 Milligram
     Route: 048
  6. METHADONE [Concomitant]
     Indication: GENERAL BODY PAIN
     Dosage: 90 Milligram
     Route: 048
  7. METHADONE [Concomitant]
     Indication: BACK PAIN AGGRAVATED
     Dosage: 45 Milligram
     Route: 048
     Dates: start: 20111013
  8. MIRALAX [Concomitant]
     Indication: CONSTIPATION
     Dosage: 217 Gram
     Route: 048
  9. SENNA [Concomitant]
     Indication: CONSTIPATION
     Dosage: 8 Tablet
     Route: 048
  10. ZOFRAN [Concomitant]
     Indication: ANTIVIRAL PROPHYLAXIS
     Dosage: 48 Milligram
     Route: 048
  11. ZOFRAN [Concomitant]
     Indication: NAUSEA
  12. ZOFRAN [Concomitant]
     Indication: VOMITING
  13. REVLIMID [Suspect]
     Indication: MULTIPLE MYELOMA
     Dosage: 25 Milligram
     Route: 048
     Dates: start: 20110916, end: 20120130
  14. CARFILZOMIB [Suspect]
     Indication: MULTIPLE MYELOMA
     Dosage: 33.4 Milligram
     Route: 065
     Dates: start: 20110916
  15. CARFILZOMIB [Suspect]
     Dosage: 45 Milligram
     Route: 065
     Dates: start: 20110923
  16. CARFILZOMIB [Suspect]
     Dosage: 33.4 Milligram
     Route: 065
     Dates: start: 20111020, end: 20111021
  17. CARFILZOMIB [Suspect]
     Dosage: 45 Milligram
     Route: 065
     Dates: start: 20111027, end: 20111214
  18. CARFILZOMIB [Suspect]
     Dosage: 45 Milligram
     Route: 065
     Dates: start: 20120110, end: 20120125
  19. CARFILZOMIB [Suspect]
     Dosage: 33.4 Milligram
     Route: 065
     Dates: start: 20120214, end: 20120229
  20. DEXAMETHASONE [Suspect]
     Indication: MULTIPLE MYELOMA
     Dosage: 40 Milligram
     Route: 065
     Dates: start: 20110916, end: 20120131
  21. ASPIRIN [Concomitant]
     Indication: ANTICOAGULANT THERAPY
     Dosage: 81 Milligram
     Route: 048
     Dates: start: 20110914
  22. ASPIRIN [Concomitant]
     Indication: ANTIPLATELET THERAPY
  23. CIPROFLOXACIN [Concomitant]
     Indication: ANTIBIOTIC PROPHYLAXIS
     Dosage: 500 Milligram
     Route: 048
     Dates: start: 20110914
  24. CLONAZEPAM [Concomitant]
     Indication: ANXIETY
     Dosage: .5 Milligram
     Route: 048
     Dates: start: 20110608
  25. HYDROMORPHONE [Concomitant]
     Indication: PAIN
     Dosage: 8 Milligram
     Route: 048
     Dates: start: 20110222
  26. LANSOPRAZOLE [Concomitant]
     Indication: GASTROINTESTINAL DISORDER NOS
     Dosage: 15 Milligram
     Route: 048
     Dates: start: 20110914
  27. NORVASC [Concomitant]
     Indication: HYPERTENSION
     Dosage: 5 Milligram
     Route: 048

REACTIONS (1)
  - Chronic hepatitis C [Not Recovered/Not Resolved]
